FAERS Safety Report 18785834 (Version 1)
Quarter: 2021Q1

REPORT INFORMATION
  Report Type: Report from Study
  Country: FR (occurrence: FR)
  Receive Date: 20210125
  Receipt Date: 20210125
  Transmission Date: 20210419
  Serious: Yes (Hospitalization, Other)
  Sender: FDA-Public Use
  Company Number: FR-BRISTOL-MYERS SQUIBB COMPANY-BMS-2019-049680

PATIENT
  Age: 79 Year
  Sex: Male
  Weight: 72.5 kg

DRUGS (1)
  1. NIVOLUMAB [Suspect]
     Active Substance: NIVOLUMAB
     Indication: METASTATIC RENAL CELL CARCINOMA
     Dosage: 229.50 MILLIGRAM
     Route: 042
     Dates: start: 20160920, end: 20190430

REACTIONS (1)
  - Diabetic metabolic decompensation [Recovered/Resolved with Sequelae]

NARRATIVE: CASE EVENT DATE: 20190516
